FAERS Safety Report 12987325 (Version 2)
Quarter: 2016Q4

REPORT INFORMATION
  Report Type: Report from Study
  Country: US (occurrence: US)
  Receive Date: 20161130
  Receipt Date: 20161221
  Transmission Date: 20170207
  Serious: Yes (Hospitalization, Other)
  Sender: FDA-Public Use
  Company Number: US-BAYER-2016-215094

PATIENT
  Age: 68 Year
  Sex: Male

DRUGS (1)
  1. STIVARGA [Suspect]
     Active Substance: REGORAFENIB
     Indication: COLORECTAL CANCER
     Dosage: 160 MG, QD
     Route: 048
     Dates: start: 20161030, end: 20161121

REACTIONS (12)
  - Dysphonia [None]
  - Tumour obstruction [None]
  - Chest pain [None]
  - Dyspnoea [None]
  - Pain in extremity [None]
  - Paraesthesia [None]
  - Pain [None]
  - Hypoaesthesia [None]
  - Colorectal cancer [None]
  - Fatigue [None]
  - Drug dose omission [None]
  - Fatigue [None]

NARRATIVE: CASE EVENT DATE: 2016
